FAERS Safety Report 6211596-1 (Version None)
Quarter: 2009Q2

REPORT INFORMATION
  Report Type: 
  Country: None (occurrence: None)
  Receive Date: 20090602
  Receipt Date: 20090520
  Transmission Date: 20091009
  Serious: Yes (Hospitalization)
  Sender: FDA-Public Use
  Company Number: SE-PURDUE-GBR-2009-0005167

PATIENT

DRUGS (14)
  1. OXYNORM [Suspect]
     Indication: DRUG USE FOR UNKNOWN INDICATION
     Dosage: UNK
     Route: 048
     Dates: start: 20090101
  2. OXYCONTIN [Suspect]
     Indication: DRUG USE FOR UNKNOWN INDICATION
     Dosage: UNK
     Route: 048
     Dates: start: 20090101
  3. SELOKENZOC [Concomitant]
  4. ATACAND [Concomitant]
  5. KALCIPOS-D [Concomitant]
  6. CRESTOR [Concomitant]
  7. ZOLPIDEM [Concomitant]
  8. MOVICOL                            /01053601/ [Concomitant]
  9. OMEPRAZOL                          /00661201/ [Concomitant]
  10. WARFARIN SODIUM [Concomitant]
  11. FURIX [Concomitant]
  12. DAONIL [Concomitant]
  13. DIGOXIN [Concomitant]
  14. PREDNISOLON                        /00016201/ [Concomitant]

REACTIONS (1)
  - DYSARTHRIA [None]
